FAERS Safety Report 19954321 (Version 1)
Quarter: 2021Q4

REPORT INFORMATION
  Report Type: Spontaneous
  Country: DE (occurrence: DE)
  Receive Date: 20211013
  Receipt Date: 20211013
  Transmission Date: 20220303
  Serious: Yes (Hospitalization)
  Sender: FDA-Public Use
  Company Number: DE-ADRED-05813-01

PATIENT
  Age: 80 Year
  Sex: Female

DRUGS (6)
  1. RAMIPRIL [Suspect]
     Active Substance: RAMIPRIL
     Indication: Product used for unknown indication
     Dosage: 5 MILLIGRAM, BID (5 MG, 1-0-1-0, TABLETS)
     Route: 048
  2. INDAPAMIDE [Suspect]
     Active Substance: INDAPAMIDE
     Indication: Product used for unknown indication
     Dosage: 2.5 MILLIGRAM, QD (2.5 MG, 1-0-0-0, CAPSULE)
     Route: 048
  3. LEVOTHYROXINE SODIUM\POTASSIUM IODIDE [Concomitant]
     Active Substance: LEVOTHYROXINE SODIUM\POTASSIUM IODIDE
     Dosage: 100 MICROGRAM, QD (1-0-0-0, TABLETS)
     Route: 048
  4. LEVOTHYROXINE SODIUM\POTASSIUM IODIDE [Concomitant]
     Active Substance: LEVOTHYROXINE SODIUM\POTASSIUM IODIDE
     Dosage: 375 MICROGRAM, QW (75 ?G, MONDAY TO FRIDAY 1 TABLET, TABLETS)
     Route: 048
  5. LEVOTHYROXINE SODIUM\POTASSIUM IODIDE [Concomitant]
     Active Substance: LEVOTHYROXINE SODIUM\POTASSIUM IODIDE
     Dosage: 200 MICROGRAM, QW (100 ?G, SATURDAY AND SUNDAY 1 TABLET, TABLETS)
     Route: 048
  6. BISOPROLOL [Concomitant]
     Active Substance: BISOPROLOL
     Dosage: 5 MILLIGRAM, QD (10 MG, 0.5-0-0-0, TABLETS)
     Route: 048

REACTIONS (4)
  - Weight decreased [Unknown]
  - Muscular weakness [Unknown]
  - Hyponatraemia [Unknown]
  - Nausea [Unknown]
